FAERS Safety Report 18200918 (Version 1)
Quarter: 2020Q3

REPORT INFORMATION
  Report Type: Spontaneous
  Country: US (occurrence: US)
  Receive Date: 20200826
  Receipt Date: 20200826
  Transmission Date: 20201103
  Serious: Yes (Disabling)
  Sender: FDA-Public Use
  Company Number: US-NOVOPROD-748339

PATIENT
  Age: 65 Year
  Sex: Female

DRUGS (1)
  1. LEVEMIR [Suspect]
     Active Substance: INSULIN DETEMIR
     Indication: TYPE 2 DIABETES MELLITUS
     Dosage: 20 IU, QD
     Route: 058
     Dates: start: 2020, end: 20200814

REACTIONS (12)
  - Balance disorder [Unknown]
  - Abdominal pain [Unknown]
  - Chest discomfort [Unknown]
  - Skin discolouration [Unknown]
  - Pruritus [Unknown]
  - Confusional state [Unknown]
  - Amnesia [Unknown]
  - Vision blurred [Unknown]
  - Peripheral swelling [Unknown]
  - Glycosylated haemoglobin increased [Unknown]
  - Diabetes mellitus [Unknown]
  - Rash [Unknown]
